FAERS Safety Report 13576103 (Version 1)
Quarter: 2017Q2

REPORT INFORMATION
  Report Type: Spontaneous
  Country: US (occurrence: US)
  Receive Date: 20170523
  Receipt Date: 20170523
  Transmission Date: 20170830
  Serious: Yes (Death, Life-Threatening, Hospitalization, Disabling, Other)
  Sender: FDA-Public Use
  Company Number: None

PATIENT
  Age: 87 Year
  Sex: Female
  Weight: 72.64 kg

DRUGS (5)
  1. FLAGVL [Concomitant]
  2. CIPROFLOYACIN [Concomitant]
  3. ALBUTERAL 0.83PR CNT 25 3ML [Suspect]
     Active Substance: ALBUTEROL
     Indication: WHEEZING
     Dates: start: 20170124, end: 20170203
  4. HYOSCYAMINE. [Concomitant]
     Active Substance: HYOSCYAMINE
  5. LORAZEPAM 2MG [Suspect]
     Active Substance: LORAZEPAM
     Indication: SEDATION
     Dates: start: 20170124, end: 20170203

REACTIONS (2)
  - Overdose [None]
  - Unevaluable event [None]

NARRATIVE: CASE EVENT DATE: 20170203
